FAERS Safety Report 20049221 (Version 1)
Quarter: 2021Q4

REPORT INFORMATION
  Report Type: Spontaneous
  Country: None (occurrence: US)
  Receive Date: 20211109
  Receipt Date: 20211109
  Transmission Date: 20220303
  Serious: No
  Sender: FDA-Public Use
  Company Number: US-Rare Disease Therapeutics, Inc.-2121637

PATIENT
  Age: 40 Year
  Sex: Male

DRUGS (1)
  1. ANAVIP [Suspect]
     Active Substance: PIT VIPER (CROTALINAE) IMMUNE GLOBULIN ANTIVENIN (EQUINE)
     Indication: Venomous bite
     Dates: start: 20211012

REACTIONS (3)
  - Erythema [Unknown]
  - Peripheral swelling [Unknown]
  - Blister [Unknown]
